FAERS Safety Report 7486999 (Version 3)
Quarter: 2018Q2

REPORT INFORMATION
  Report Type: Report from Study
  Country: NL (occurrence: NL)
  Receive Date: 20100719
  Receipt Date: 20180605
  Transmission Date: 20180711
  Serious: Yes (Death, Other)
  Sender: FDA-Public Use
  Company Number: NL-CELGENEUS-114-21880-10070578

PATIENT

DRUGS (5)
  1. REVLIMID [Suspect]
     Active Substance: LENALIDOMIDE
     Indication: PLASMA CELL MYELOMA
     Dosage: 10 MILLIGRAM
     Route: 048
  2. VALACYCLOVIR [Concomitant]
     Active Substance: VALACYCLOVIR HYDROCHLORIDE
     Indication: PRODUCT USED FOR UNKNOWN INDICATION
     Dosage: 1000 MILLIGRAM
     Route: 065
  3. FLUDARABINE [Concomitant]
     Active Substance: FLUDARABINE PHOSPHATE
     Indication: PRODUCT USED FOR UNKNOWN INDICATION
     Route: 065
  4. COTRIMOXAZOLE [Concomitant]
     Active Substance: SULFAMETHOXAZOLE\TRIMETHOPRIM
     Indication: PRODUCT USED FOR UNKNOWN INDICATION
     Dosage: 960 MILLIGRAM
     Route: 065
  5. REVLIMID [Suspect]
     Active Substance: LENALIDOMIDE
     Dosage: 5 MILLIGRAM
     Route: 048

REACTIONS (16)
  - Breast cancer [Unknown]
  - Ovarian neoplasm [Unknown]
  - Skin toxicity [Unknown]
  - Epstein-Barr virus infection [Unknown]
  - Metabolic disorder [Unknown]
  - Haematotoxicity [Unknown]
  - Febrile neutropenia [Unknown]
  - Plasma cell myeloma [Fatal]
  - Graft versus host disease in liver [Unknown]
  - Acute graft versus host disease in intestine [Unknown]
  - Graft versus host disease in skin [Unknown]
  - Infection [Unknown]
  - Pleural effusion [Unknown]
  - Pyrexia [Unknown]
  - Bone marrow toxicity [Unknown]
  - Rectal haemorrhage [Unknown]
